FAERS Safety Report 4917490-8 (Version None)
Quarter: 2006Q1

REPORT INFORMATION
  Report Type: 
  Country: None (occurrence: None)
  Receive Date: 20060221
  Receipt Date: 20060209
  Transmission Date: 20060701
  Serious: Yes (Other)
  Sender: FDA-Public Use
  Company Number: US-JNJFOC-20060203347

PATIENT
  Sex: Female
  Weight: 49.9 kg

DRUGS (2)
  1. DURAGESIC-100 [Suspect]
     Route: 062
  2. ALTACE [Concomitant]
     Indication: HYPERTENSION
     Route: 048

REACTIONS (2)
  - CARPAL TUNNEL SYNDROME [None]
  - PANCREATIC CARCINOMA [None]
